FAERS Safety Report 10218708 (Version 1)
Quarter: 2014Q2

REPORT INFORMATION
  Report Type: Spontaneous
  Country: RS (occurrence: RS)
  Receive Date: 20140605
  Receipt Date: 20140605
  Transmission Date: 20141212
  Serious: Yes (Life-Threatening, Hospitalization)
  Sender: FDA-Public Use
  Company Number: PHHY2014RS068589

PATIENT
  Age: 52 Year
  Sex: Female
  Weight: 69 kg

DRUGS (3)
  1. EXELON PATCH [Suspect]
     Indication: DEMENTIA
     Dosage: 4.6 MG, DAILY
     Route: 062
  2. EBIXA [Suspect]
     Indication: DEMENTIA
     Dosage: 10 MG, QD ONCE DAILY
     Route: 048
     Dates: start: 201402, end: 20140516
  3. TIVORAL [Suspect]
     Indication: HYPOTHYROIDISM
     Dosage: 37.5 UG, QD ONCE DAILY IN THE MORNING
     Route: 048
     Dates: start: 2011

REACTIONS (1)
  - Pulmonary embolism [Recovering/Resolving]
